FAERS Safety Report 9733340 (Version 2)
Quarter: 2013Q4

REPORT INFORMATION
  Report Type: Spontaneous
  Country: ZA (occurrence: ZA)
  Receive Date: 20131205
  Receipt Date: 20131216
  Transmission Date: 20140711
  Serious: Yes (Life-Threatening, Other)
  Sender: FDA-Public Use
  Company Number: ZA-ASTRAZENECA-2013SE88003

PATIENT
  Age: 75 Year
  Sex: Male

DRUGS (7)
  1. VIMOVO [Suspect]
     Indication: ARTHRALGIA
     Dosage: 500/20 MG, 1 DF, AS REQUIRED, TOTAL OF 20 TABLETS OVER 8 WEEKS
     Route: 048
     Dates: start: 20130912
  2. VENTOLIN [Concomitant]
     Indication: ASTHMA
     Dosage: SOMETIMES TAKING TWO DOSES WITHIN TWO HOURS
  3. VENTOLIN [Concomitant]
     Indication: ASTHMA
     Dosage: AS REQUIRED
  4. ASPAVOR [Concomitant]
  5. ASPAVOR [Concomitant]
  6. PRITOR [Concomitant]
  7. FLOMAX SR [Concomitant]

REACTIONS (4)
  - Acute coronary syndrome [Unknown]
  - Coronary artery thrombosis [Unknown]
  - Arteriospasm coronary [Unknown]
  - Acute myocardial infarction [Unknown]
